FAERS Safety Report 23336143 (Version 2)
Quarter: 2024Q1

REPORT INFORMATION
  Report Type: Report from Study
  Country: BR (occurrence: BR)
  Receive Date: 20231225
  Receipt Date: 20240103
  Transmission Date: 20240409
  Serious: Yes (Other)
  Sender: FDA-Public Use
  Company Number: BR-002147023-NVSC2023BR236613

PATIENT
  Sex: Female
  Weight: 68 kg

DRUGS (9)
  1. KISQALI [Suspect]
     Active Substance: RIBOCICLIB
     Indication: Breast cancer
     Dosage: UNK, TID, STARTED 3 MONTHS AGO
     Route: 048
  2. PANTOPRAZOLE [Suspect]
     Active Substance: PANTOPRAZOLE
     Indication: Abdominal discomfort
     Dosage: 40 MG, QD
     Route: 048
     Dates: start: 202311
  3. ANASTROZOLE [Concomitant]
     Active Substance: ANASTROZOLE
     Indication: Breast cancer
     Dosage: 200 MG, QD
     Route: 048
     Dates: start: 202303
  4. PREGABALIN [Concomitant]
     Active Substance: PREGABALIN
     Indication: Pain
     Dosage: 75 MG, Q6H, USES ONLY WHEN SHE FEELS PAIN
     Route: 048
     Dates: start: 202302
  5. MORPHINE SULFATE [Concomitant]
     Active Substance: MORPHINE SULFATE
     Indication: Pain
     Dosage: 10 MG, Q6H, USES ONLY WHEN SHE FEELS PAIN
     Route: 048
     Dates: start: 202302
  6. DIPYRONE [Concomitant]
     Active Substance: DIPYRONE
     Indication: Pain
     Dosage: 1 G, Q6H, USES ONLY WHEN SHE FEELS PAIN
     Route: 048
     Dates: start: 202302
  7. CLONAZEPAM [Concomitant]
     Active Substance: CLONAZEPAM
     Indication: Insomnia
     Dosage: 2 MG, QD, HALF A TABLET (SHE BREAKS THE TABLET IN HALF)
     Route: 048
     Dates: start: 202302
  8. DIMENHYDRINATE [Concomitant]
     Active Substance: DIMENHYDRINATE
     Indication: Nausea
     Dosage: QD, STARTED 3 MONTHS AGO, USE ONLY WHEN NAUSEATED
     Route: 048
  9. PAROXETINE HYDROCHLORIDE [Concomitant]
     Active Substance: PAROXETINE HYDROCHLORIDE\PAROXETINE HYDROCHLORIDE ANHYDROUS
     Indication: Anxiety
     Dosage: 30 MG, QD
     Route: 048
     Dates: start: 202303

REACTIONS (2)
  - Urinary retention [Not Recovered/Not Resolved]
  - Fatigue [Not Recovered/Not Resolved]

NARRATIVE: CASE EVENT DATE: 20230101
